FAERS Safety Report 22108926 (Version 3)
Quarter: 2023Q2

REPORT INFORMATION
  Report Type: Spontaneous
  Country: US (occurrence: US)
  Receive Date: 20230317
  Receipt Date: 20230615
  Transmission Date: 20230722
  Serious: Yes (Hospitalization, Other)
  Sender: FDA-Public Use
  Company Number: US-BoehringerIngelheim-2023-BI-225043

PATIENT
  Age: 80 Year
  Sex: Male
  Weight: 70 kg

DRUGS (1)
  1. JARDIANCE [Suspect]
     Active Substance: EMPAGLIFLOZIN
     Indication: Type 2 diabetes mellitus
     Dates: start: 202212

REACTIONS (7)
  - Haematuria [Recovered/Resolved]
  - Systemic candida [Unknown]
  - Candida pneumonia [Unknown]
  - Fungal infection [Unknown]
  - Sepsis [Recovered/Resolved]
  - Sepsis [Unknown]
  - Haematuria [Unknown]

NARRATIVE: CASE EVENT DATE: 20221220
